FAERS Safety Report 8274944-7 (Version None)
Quarter: 2012Q2

REPORT INFORMATION
  Report Type: 
  Country: None (occurrence: None)
  Receive Date: 20120411
  Receipt Date: 20120405
  Transmission Date: 20120825
  Serious: No
  Sender: FDA-Public Use
  Company Number: US-PFIZER INC-2012086775

PATIENT
  Sex: Female
  Weight: 72 kg

DRUGS (4)
  1. ESTRING [Suspect]
     Indication: VULVOVAGINAL DRYNESS
     Dosage: UNK
     Route: 067
     Dates: start: 20110101, end: 20120404
  2. LIPITOR [Suspect]
     Indication: BLOOD CHOLESTEROL ABNORMAL
     Dosage: UNK
  3. ESTRING [Suspect]
     Indication: URINARY INCONTINENCE
  4. ESTROGENS [Concomitant]
     Dosage: UNK

REACTIONS (4)
  - DIARRHOEA [None]
  - NAUSEA [None]
  - CRYING [None]
  - PAIN [None]
